FAERS Safety Report 23130598 (Version 3)
Quarter: 2024Q1

REPORT INFORMATION
  Report Type: Spontaneous
  Country: US (occurrence: US)
  Receive Date: 20231031
  Receipt Date: 20240305
  Transmission Date: 20240410
  Serious: Yes (Hospitalization)
  Sender: FDA-Public Use
  Company Number: US-PFIZER INC-202300348412

PATIENT
  Age: 72 Year
  Sex: Male
  Weight: 106.59 kg

DRUGS (3)
  1. SOMAVERT [Suspect]
     Active Substance: PEGVISOMANT
     Indication: Acromegaly
     Dosage: 10 MG, ALTERNATE DAY
     Dates: start: 2009
  2. SOMAVERT [Suspect]
     Active Substance: PEGVISOMANT
     Indication: Addison^s disease
     Dosage: 10 MG, 1X/DAY
     Dates: start: 2010
  3. METOPROLOL [Concomitant]
     Active Substance: METOPROLOL
     Indication: Atrial fibrillation
     Dosage: UNK
     Dates: start: 2011

REACTIONS (13)
  - Sleep disorder [Not Recovered/Not Resolved]
  - Joint swelling [Not Recovered/Not Resolved]
  - Peripheral swelling [Not Recovered/Not Resolved]
  - Pain in extremity [Not Recovered/Not Resolved]
  - Arthralgia [Not Recovered/Not Resolved]
  - Mouth swelling [Unknown]
  - Stomatitis [Unknown]
  - Confusional state [Unknown]
  - Lethargy [Unknown]
  - Terminal insomnia [Unknown]
  - International normalised ratio fluctuation [Unknown]
  - Pain [Unknown]
  - Intentional product misuse [Unknown]

NARRATIVE: CASE EVENT DATE: 20230101
